FAERS Safety Report 24105162 (Version 1)
Quarter: 2024Q3

REPORT INFORMATION
  Report Type: Spontaneous
  Country: US (occurrence: US)
  Receive Date: 20240717
  Receipt Date: 20240717
  Transmission Date: 20241017
  Serious: Yes (Other)
  Sender: ABBVIE
  Company Number: US-ABBVIE-5836996

PATIENT
  Sex: Male

DRUGS (4)
  1. BYSTOLIC [Suspect]
     Active Substance: NEBIVOLOL HYDROCHLORIDE
     Indication: Product used for unknown indication
     Route: 048
     Dates: start: 2011
  2. WARFARIN [Concomitant]
     Active Substance: WARFARIN
     Indication: Product used for unknown indication
  3. POTASSIUM [Concomitant]
     Active Substance: POTASSIUM
     Indication: Product used for unknown indication
  4. ELIQUIS [Concomitant]
     Active Substance: APIXABAN
     Indication: Product used for unknown indication

REACTIONS (13)
  - Aortic stenosis [Unknown]
  - Blood pressure fluctuation [Unknown]
  - Atrial fibrillation [Unknown]
  - Hypertension [Unknown]
  - Epistaxis [Unknown]
  - Oedema [Unknown]
  - Hepatic steatosis [Unknown]
  - Cardiac failure congestive [Unknown]
  - Aortic valve stenosis [Unknown]
  - Cardiomegaly [Unknown]
  - Intervertebral disc protrusion [Unknown]
  - Excessive cerumen production [Unknown]
  - Fatigue [Unknown]

NARRATIVE: CASE EVENT DATE: 20240101
